FAERS Safety Report 4975821-7 (Version None)
Quarter: 2006Q2

REPORT INFORMATION
  Report Type: 
  Country: None (occurrence: None)
  Receive Date: 20060411
  Receipt Date: 20060328
  Transmission Date: 20061013
  Serious: Yes (Death, Hospitalization)
  Sender: FDA-Public Use
  Company Number: 800186

PATIENT
  Age: 50 Year
  Sex: Male
  Weight: 74.5 kg

DRUGS (16)
  1. EXTRANEAL [Suspect]
     Indication: PERITONEAL DIALYSIS
     Dosage: 2 L; EVERY DAY; IP
     Route: 033
     Dates: start: 20031203, end: 20040115
  2. CALCIUM CARBONATE [Concomitant]
  3. RENAGEL [Concomitant]
  4. CHOLEBRINE [Concomitant]
  5. ZYLORIC [Concomitant]
  6. EPADEL [Concomitant]
  7. HORNEL [Concomitant]
  8. CALCIUM POLYSTYRENE SULFONATE [Concomitant]
  9. DIGOXIN [Concomitant]
  10. SELOKEN [Concomitant]
  11. ATELEC [Concomitant]
  12. BLOPRESS [Concomitant]
  13. ADALAT [Concomitant]
  14. PURSENNID [Concomitant]
  15. FERRICON [Concomitant]
  16. EPOGEN [Concomitant]

REACTIONS (9)
  - ABDOMINAL ADHESIONS [None]
  - ARRHYTHMIA [None]
  - CARDIAC FAILURE ACUTE [None]
  - HAEMODIALYSIS [None]
  - HYPERTROPHY [None]
  - PERITONEAL DISORDER [None]
  - PERITONITIS BACTERIAL [None]
  - PERITONITIS SCLEROSING [None]
  - STAPHYLOCOCCAL INFECTION [None]
